FAERS Safety Report 21000178 (Version 1)
Quarter: 2022Q2

REPORT INFORMATION
  Report Type: Spontaneous
  Country: AU (occurrence: AU)
  Receive Date: 20220623
  Receipt Date: 20220623
  Transmission Date: 20220721
  Serious: Yes (Other)
  Sender: FDA-Public Use
  Company Number: AU-MYLANLABS-2022M1047172

PATIENT
  Age: 86 Year
  Sex: Female

DRUGS (7)
  1. KETAMINE [Suspect]
     Active Substance: KETAMINE
     Indication: Pain in extremity
     Dosage: UNK, UNK, COMPOUNDED PREPARATION CONTAINING CLONIDINE??
     Route: 061
  2. AMITRIPTYLINE [Suspect]
     Active Substance: AMITRIPTYLINE
     Indication: Pain in extremity
     Dosage: UNK, CREAM, COMPOUNDED PREPARATION CONTAINING CLONIDINE??.
     Route: 061
  3. GABAPENTIN [Suspect]
     Active Substance: GABAPENTIN
     Indication: Pain in extremity
     Dosage: UNK, CREAM, COMPOUNDED PREPARATION CONTAINING CLONIDINE??..
     Route: 061
  4. CLONIDINE [Suspect]
     Active Substance: CLONIDINE
     Indication: Pain in extremity
     Dosage: UNK, COMPOUNDED PREPARATION CONTAINING CLONIDINE?..
     Route: 061
  5. CODEINE [Suspect]
     Active Substance: CODEINE
     Indication: Product used for unknown indication
     Dosage: UNK
     Route: 065
  6. OXYCODONE [Concomitant]
     Active Substance: OXYCODONE
     Indication: Product used for unknown indication
     Dosage: UNK, AT SIGNIFICANTLY LOWER DOSES
     Route: 065
  7. TAPENTADOL [Concomitant]
     Active Substance: TAPENTADOL
     Indication: Product used for unknown indication
     Dosage: UNK
     Route: 065

REACTIONS (9)
  - Sinus bradycardia [Recovering/Resolving]
  - Somnolence [Unknown]
  - Dry mouth [Unknown]
  - Dizziness [Unknown]
  - Hypothermia [Unknown]
  - Miosis [Unknown]
  - Toxicity to various agents [Recovering/Resolving]
  - Atrioventricular block first degree [Unknown]
  - Hypotension [Recovering/Resolving]
